FAERS Safety Report 5625806-2 (Version None)
Quarter: 2008Q1

REPORT INFORMATION
  Report Type: 
  Country: None (occurrence: None)
  Receive Date: 20080212
  Receipt Date: 20080212
  Transmission Date: 20080703
  Serious: Yes (Other)
  Sender: FDA-Public Use
  Company Number: None

PATIENT
  Age: 67 Year
  Sex: Male
  Weight: 76.2043 kg

DRUGS (2)
  1. BROMFENEX EXT RELEASE   ETHEX [Suspect]
     Indication: NASAL CONGESTION
     Dosage: 10 DRAM -GREEN AND WHITE CAPS- TWICE DAILY PO
     Route: 048
     Dates: start: 20080209, end: 20080210
  2. BROMFENEX EXT RELEASE   ETHEX [Suspect]
     Indication: NASOPHARYNGITIS
     Dosage: 10 DRAM -GREEN AND WHITE CAPS- TWICE DAILY PO
     Route: 048
     Dates: start: 20080209, end: 20080210

REACTIONS (3)
  - DIARRHOEA [None]
  - DYSURIA [None]
  - URINE FLOW DECREASED [None]
